FAERS Safety Report 4760932-1 (Version None)
Quarter: 2005Q3

REPORT INFORMATION
  Report Type: 
  Country: None (occurrence: None)
  Receive Date: 20050901
  Receipt Date: 20050818
  Transmission Date: 20060218
  Serious: Yes (Life-Threatening, Other)
  Sender: FDA-Public Use
  Company Number: 2005US000767

PATIENT
  Age: 40 Year
  Sex: Female
  Weight: 68 kg

DRUGS (2)
  1. PROTOPIC [Suspect]
     Indication: ECZEMA
  2. OCCASIONAL TOPICAL STEROIDS [Concomitant]

REACTIONS (3)
  - BASAL CELL CARCINOMA [None]
  - IMMUNE SYSTEM DISORDER [None]
  - NO THERAPEUTIC RESPONSE [None]
